FAERS Safety Report 17285125 (Version 1)
Quarter: 2020Q1

REPORT INFORMATION
  Report Type: Spontaneous
  Country: US (occurrence: US)
  Receive Date: 20200117
  Receipt Date: 20200117
  Transmission Date: 20200409
  Serious: No
  Sender: FDA-Public Use
  Company Number: US-TARO-2019TAR00688

PATIENT
  Age: 56 Year
  Sex: Female
  Weight: 136.05 kg

DRUGS (5)
  1. LYRICA [Concomitant]
     Active Substance: PREGABALIN
  2. CLOTRIMAZOLE VAGINAL CREAM USP 1% 7 DAY [Suspect]
     Active Substance: CLOTRIMAZOLE
     Indication: SKIN DISCOLOURATION
  3. UNSPECIFIED HIGH BLOOD PRESSURE MEDICATION [Concomitant]
     Active Substance: UNSPECIFIED INGREDIENT
  4. CLOTRIMAZOLE VAGINAL CREAM USP 1% 7 DAY [Suspect]
     Active Substance: CLOTRIMAZOLE
     Indication: VULVOVAGINAL MYCOTIC INFECTION
     Dosage: UNK, 1X/DAY
     Route: 067
     Dates: start: 20190929
  5. CLOTRIMAZOLE VAGINAL CREAM USP 1% 7 DAY [Suspect]
     Active Substance: CLOTRIMAZOLE
     Indication: SKIN FISSURES
     Dosage: UNK, 2X/DAY
     Route: 061
     Dates: start: 20190929

REACTIONS (3)
  - Application site pain [Not Recovered/Not Resolved]
  - Off label use [Not Recovered/Not Resolved]
  - Vulvovaginal burning sensation [Unknown]

NARRATIVE: CASE EVENT DATE: 20190929
